FAERS Safety Report 8398034-8 (Version None)
Quarter: 2012Q2

REPORT INFORMATION
  Report Type: 
  Country: None (occurrence: None)
  Receive Date: 20120524
  Receipt Date: 20120516
  Transmission Date: 20120825
  Serious: Yes (Hospitalization)
  Sender: FDA-Public Use
  Company Number: WAES 1205USA03398

PATIENT
  Age: 45 Year
  Sex: Male

DRUGS (10)
  1. JANUVIA [Suspect]
     Indication: TYPE 2 DIABETES MELLITUS
     Dosage: 100 MG/DAILY/PO
     Route: 048
     Dates: start: 20091223, end: 20120504
  2. ATORVASTATIN CALCIUM [Concomitant]
  3. ASPIRIN [Concomitant]
  4. SOTALOL HCL [Concomitant]
  5. METFORMIN HCL [Suspect]
     Indication: TYPE 2 DIABETES MELLITUS
     Dosage: 1500 MG/DAILY/PO
     Route: 048
     Dates: start: 20090602
  6. LEVOTHYROXINE SODIUM [Concomitant]
  7. RAMIPRIL [Concomitant]
  8. CLOPIDOGREL [Concomitant]
  9. FENOFIBRATE [Concomitant]
  10. INSULIN [Concomitant]

REACTIONS (4)
  - BLOOD GLUCOSE INCREASED [None]
  - CARDIOMEGALY [None]
  - ATELECTASIS [None]
  - HYPOGLYCAEMIC SEIZURE [None]
